FAERS Safety Report 14492417 (Version 1)
Quarter: 2018Q1

REPORT INFORMATION
  Report Type: Spontaneous
  Country: US (occurrence: US)
  Receive Date: 20180206
  Receipt Date: 20180206
  Transmission Date: 20180509
  Serious: No
  Sender: FDA-Public Use
  Company Number: US-ALLERGAN-1764763US

PATIENT
  Age: 4 Decade
  Sex: Female

DRUGS (1)
  1. RHOFADE [Suspect]
     Active Substance: OXYMETAZOLINE HYDROCHLORIDE
     Indication: ERYTHEMATOTELANGIECTATIC ROSACEA
     Route: 065

REACTIONS (1)
  - Dry eye [Unknown]
